FAERS Safety Report 7981118-3 (Version None)
Quarter: 2011Q4

REPORT INFORMATION
  Report Type: 
  Country: None (occurrence: None)
  Receive Date: 20111212
  Receipt Date: 20111128
  Transmission Date: 20120403
  Serious: Yes (Hospitalization)
  Sender: FDA-Public Use
  Company Number: 2011P1012187

PATIENT
  Age: 19 Year
  Sex: Male

DRUGS (1)
  1. SOLODYN [Suspect]
     Indication: ACNE
     Dosage: 115 MG;QD;PO
     Route: 048
     Dates: start: 20111004, end: 20111001

REACTIONS (1)
  - MYOPERICARDITIS [None]
